FAERS Safety Report 20123084 (Version 1)
Quarter: 2021Q4

REPORT INFORMATION
  Report Type: Spontaneous
  Country: US (occurrence: US)
  Receive Date: 20211129
  Receipt Date: 20211129
  Transmission Date: 20220303
  Serious: No
  Sender: FDA-Public Use
  Company Number: US-UCBSA-2020042084

PATIENT

DRUGS (2)
  1. VIMPAT [Suspect]
     Active Substance: LACOSAMIDE
     Indication: Seizure
     Dosage: UNK
  2. ZONISAMIDE [Concomitant]
     Active Substance: ZONISAMIDE
     Indication: Seizure

REACTIONS (3)
  - Visual impairment [Recovered/Resolved]
  - Balance disorder [Unknown]
  - Memory impairment [Unknown]
